FAERS Safety Report 5225190-2 (Version None)
Quarter: 2007Q1

REPORT INFORMATION
  Report Type: 
  Country: None (occurrence: None)
  Receive Date: 20070129
  Receipt Date: 20070115
  Transmission Date: 20070707
  Serious: Yes (Hospitalization)
  Sender: FDA-Public Use
  Company Number: 2006BI013927

PATIENT
  Age: 59 Year
  Sex: Male

DRUGS (12)
  1. ZEVALIN [Suspect]
     Indication: BONE MARROW CONDITIONING REGIMEN
     Dosage: 1112 MBQ; 1X; IV
     Route: 042
     Dates: start: 20060818, end: 20060818
  2. ZEVALIN [Suspect]
  3. RITUXIMAB [Concomitant]
  4. RITUXIMAB [Concomitant]
  5. CARMUSTINE [Concomitant]
  6. ETOPOSIDE [Concomitant]
  7. CYTARABINE [Concomitant]
  8. MELPHALAN [Concomitant]
  9. PARACETAMOL [Concomitant]
  10. CARMUSTINE [Concomitant]
  11. ETOPOSIDE [Concomitant]
  12. ARACYTINE [Concomitant]

REACTIONS (6)
  - COUGH [None]
  - DRUG TOXICITY [None]
  - ENGRAFTMENT SYNDROME [None]
  - HAEMOGLOBIN DECREASED [None]
  - LUNG INFILTRATION [None]
  - PYREXIA [None]
